FAERS Safety Report 11719946 (Version 1)
Quarter: 2015Q4

REPORT INFORMATION
  Report Type: Spontaneous
  Country: US (occurrence: US)
  Receive Date: 20151110
  Receipt Date: 20151110
  Transmission Date: 20160304
  Serious: Yes (Death, Hospitalization)
  Sender: FDA-Public Use
  Company Number: US-BAYER-2015-258474

PATIENT
  Age: 80 Year
  Sex: Male

DRUGS (2)
  1. XARELTO [Suspect]
     Active Substance: RIVAROXABAN
     Indication: HEART RATE IRREGULAR
     Dosage: 20 MG, UNK
     Route: 048
     Dates: start: 20130301, end: 20130408
  2. ACETYLSALICYLIC ACID({=100 MG) [Suspect]
     Active Substance: ASPIRIN
     Indication: ISCHAEMIC HEART DISEASE PROPHYLAXIS
     Dosage: 81 MG, UNK
     Route: 048

REACTIONS (5)
  - Respiratory failure [Fatal]
  - Internal haemorrhage [Fatal]
  - Occult blood positive [Unknown]
  - Acute kidney injury [Fatal]
  - Haemoptysis [Fatal]

NARRATIVE: CASE EVENT DATE: 201304
